FAERS Safety Report 18236289 (Version 2)
Quarter: 2020Q4

REPORT INFORMATION
  Report Type: Spontaneous
  Country: US (occurrence: US)
  Receive Date: 20200906
  Receipt Date: 20201118
  Transmission Date: 20210113
  Serious: Yes (Hospitalization)
  Sender: FDA-Public Use
  Company Number: US-BEH-2020121899

PATIENT
  Age: 53 Year
  Sex: Female
  Weight: 62.13 kg

DRUGS (2)
  1. PREDNISONE. [Concomitant]
     Active Substance: PREDNISONE
     Dosage: 10 MILLIGRAM, QD
     Route: 048
     Dates: start: 202006
  2. HIZENTRA [Suspect]
     Active Substance: HUMAN IMMUNOGLOBULIN G
     Indication: DEMYELINATION
     Dosage: UNK, QW
     Route: 065
     Dates: start: 20200801

REACTIONS (5)
  - No adverse event [Unknown]
  - Off label use [Unknown]
  - Dyspnoea [Recovering/Resolving]
  - Pulmonary embolism [Recovering/Resolving]
  - Deep vein thrombosis [Recovering/Resolving]

NARRATIVE: CASE EVENT DATE: 202008
